FAERS Safety Report 8113141-2 (Version None)
Quarter: 2012Q1

REPORT INFORMATION
  Report Type: 
  Country: None (occurrence: None)
  Receive Date: 20120131
  Receipt Date: 20120119
  Transmission Date: 20120608
  Serious: Yes (Death)
  Sender: FDA-Public Use
  Company Number: 1000027408

PATIENT
  Age: 76 Year
  Sex: Female

DRUGS (6)
  1. MEMANTINE HCL [Suspect]
     Dosage: 20 MG (20 MG, 1 IN 1 D), ORAL
     Route: 048
  2. LISINOPRIL [Concomitant]
  3. TRIMEPRAZINE TAB [Concomitant]
  4. CHLORDIAZEPOXIDE [Concomitant]
  5. CHLORPROMAZINE HCL [Concomitant]
  6. MIRTAZAPINE [Concomitant]

REACTIONS (1)
  - DEATH [None]
